FAERS Safety Report 4872786-3 (Version None)
Quarter: 2005Q4

REPORT INFORMATION
  Report Type: 
  Country: None (occurrence: None)
  Receive Date: 20051230
  Receipt Date: 20050920
  Transmission Date: 20060501
  Serious: Yes (Hospitalization)
  Sender: FDA-Public Use
  Company Number: US-2005-019714

PATIENT
  Age: 81 Year
  Sex: Female
  Weight: 63.9 kg

DRUGS (6)
  1. SOTALOL HCL [Suspect]
     Indication: ATRIAL FIBRILLATION
     Dosage: TITRATED TO 120MG DAILY, ORAL
     Route: 048
     Dates: start: 20050822, end: 20050825
  2. LASIX [Concomitant]
  3. DIGOXIN [Concomitant]
  4. CARDIZEM [Concomitant]
  5. COUMADIN [Concomitant]
  6. TOPROL-XL [Concomitant]

REACTIONS (4)
  - ELECTROCARDIOGRAM QT CORRECTED INTERVAL PROLONGED [None]
  - EXTRASYSTOLES [None]
  - POST PROCEDURAL COMPLICATION [None]
  - VENTRICULAR TACHYCARDIA [None]
